FAERS Safety Report 10585520 (Version 1)
Quarter: 2014Q4

REPORT INFORMATION
  Report Type: Spontaneous
  Country: DE (occurrence: DE)
  Receive Date: 20141114
  Receipt Date: 20141114
  Transmission Date: 20150529
  Serious: Yes (Congenital Anomaly, Other)
  Sender: FDA-Public Use
  Company Number: DE-TEVA-521694GER

PATIENT
  Age: 1 Day
  Sex: Female
  Weight: 3.92 kg

DRUGS (7)
  1. CARBAMAZEPIN [Concomitant]
     Active Substance: CARBAMAZEPINE
     Indication: DEPRESSION
     Dosage: 200 MILLIGRAM DAILY;
     Route: 064
     Dates: start: 20130522, end: 20130711
  2. KOKAIN [Concomitant]
     Indication: SUBSTANCE ABUSER
     Dosage: 250 MILLIGRAM DAILY;
     Route: 064
  3. MAXIM [Concomitant]
     Active Substance: DIENOGEST\ETHINYL ESTRADIOL
     Indication: ORAL CONTRACEPTION
     Dosage: 1 TABLET DAILY; 1 TABLET CONTAINS: 0.03 ETHINYLESTRADIOL AND 2 MG DIENOGEST
     Route: 064
     Dates: start: 20130522, end: 20130708
  4. CLOMIPRAMINE [Suspect]
     Active Substance: CLOMIPRAMINE
     Indication: DEPRESSION
     Dosage: 150 MILLIGRAM DAILY; NOT TAKEN BETWEEN WEEK 8 AND 20
     Route: 064
     Dates: start: 20130522, end: 20140221
  5. L-THYROXIN [Concomitant]
     Active Substance: LEVOTHYROXINE SODIUM
     Indication: AUTOIMMUNE THYROIDITIS
     Dosage: 75 MICROGRAM DAILY;
     Route: 064
     Dates: start: 20130522, end: 20140221
  6. ASPIRIN. [Concomitant]
     Active Substance: ASPIRIN
     Indication: URINARY TRACT INFECTION
     Route: 064
  7. FOLIO [Concomitant]
     Active Substance: FOLIC ACID
     Indication: PROPHYLAXIS OF NEURAL TUBE DEFECT
     Dosage: .4 MILLIGRAM DAILY;
     Route: 064
     Dates: start: 20130711, end: 20140221

REACTIONS (7)
  - Tremor [Recovered/Resolved]
  - Respiratory disorder neonatal [Recovered/Resolved]
  - Atrial septal defect [Not Recovered/Not Resolved]
  - Patent ductus arteriosus [Not Recovered/Not Resolved]
  - Pulmonary artery stenosis [Recovered/Resolved]
  - Foetal exposure during pregnancy [Unknown]
  - Foot deformity [Unknown]

NARRATIVE: CASE EVENT DATE: 20140221
